FAERS Safety Report 6921616-4 (Version None)
Quarter: 2010Q3

REPORT INFORMATION
  Report Type: 
  Country: None (occurrence: None)
  Receive Date: 20100812
  Receipt Date: 20100802
  Transmission Date: 20110219
  Serious: Yes (Hospitalization)
  Sender: FDA-Public Use
  Company Number: ES-MERCK-1008USA00316

PATIENT
  Age: 81 Year
  Sex: Female

DRUGS (3)
  1. MODURETIC 5-50 [Suspect]
     Indication: HYPERTENSION
     Route: 048
     Dates: start: 20080101
  2. SERC [Concomitant]
     Indication: VERTIGO
     Route: 048
     Dates: start: 20100101
  3. TENORMIN [Concomitant]
     Indication: HYPERTENSION
     Route: 065
     Dates: start: 20080101

REACTIONS (4)
  - ASTHENIA [None]
  - DECREASED APPETITE [None]
  - HYPONATRAEMIA [None]
  - NAUSEA [None]
